FAERS Safety Report 5293811-4 (Version None)
Quarter: 2007Q2

REPORT INFORMATION
  Report Type: 
  Country: None (occurrence: None)
  Receive Date: 20070411
  Receipt Date: 20070330
  Transmission Date: 20071010
  Serious: Yes (Hospitalization, Other)
  Sender: FDA-Public Use
  Company Number: US-PFIZER INC-2006058585

PATIENT
  Sex: Male

DRUGS (14)
  1. NEURONTIN [Suspect]
     Indication: NEURALGIA
     Route: 048
  2. NEURONTIN [Suspect]
     Indication: CONVULSION
  3. DILANTIN [Suspect]
     Route: 048
  4. OXYCONTIN [Suspect]
  5. REMERON [Suspect]
  6. EFFEXOR [Suspect]
  7. OMEPRAZOLE [Suspect]
  8. PROZAC [Suspect]
  9. ALCOHOL [Suspect]
  10. WELLBUTRIN SR [Concomitant]
  11. LEXAPRO [Concomitant]
  12. LISINOPRIL [Concomitant]
  13. HUMALOG [Concomitant]
  14. LANTUS [Concomitant]

REACTIONS (10)
  - ALCOHOL POISONING [None]
  - DEPRESSION [None]
  - DRUG INEFFECTIVE [None]
  - GRAND MAL CONVULSION [None]
  - HALLUCINATION, VISUAL [None]
  - HYPOXIA [None]
  - INSOMNIA [None]
  - MULTIPLE DRUG OVERDOSE INTENTIONAL [None]
  - SUICIDAL IDEATION [None]
  - SUICIDE ATTEMPT [None]
